FAERS Safety Report 13885688 (Version 1)
Quarter: 2017Q3

REPORT INFORMATION
  Report Type: Spontaneous
  Country: CA (occurrence: CA)
  Receive Date: 20170821
  Receipt Date: 20170821
  Transmission Date: 20171127
  Serious: No
  Sender: FDA-Public Use
  Company Number: CA-LUPIN PHARMACEUTICALS INC.-E2B_00007231

PATIENT
  Sex: Female
  Weight: 68 kg

DRUGS (3)
  1. JENCYCLA [Suspect]
     Active Substance: NORETHINDRONE
     Indication: CONTRACEPTION
     Dosage: .35 MG,QD,
     Route: 048
     Dates: start: 20161103
  2. JENCYCLA [Suspect]
     Active Substance: NORETHINDRONE
     Indication: CONTRACEPTION
     Dosage: .35 MG,QD,
     Route: 048
     Dates: start: 20161103
  3. PEN V [Concomitant]
     Active Substance: PENICILLIN V
     Indication: PHARYNGITIS STREPTOCOCCAL
     Dosage: 2 DF,BID,
     Route: 048

REACTIONS (1)
  - Eczema [Not Recovered/Not Resolved]
